FAERS Safety Report 20717859 (Version 1)
Quarter: 2022Q2

REPORT INFORMATION
  Report Type: Spontaneous
  Country: FR (occurrence: FR)
  Receive Date: 20220418
  Receipt Date: 20220418
  Transmission Date: 20220721
  Serious: Yes (Other)
  Sender: FDA-Public Use
  Company Number: FR-NOVARTISPH-NVSC2022FR083367

PATIENT
  Age: 37 Year
  Sex: Male

DRUGS (4)
  1. LEVETIRACETAM [Interacting]
     Active Substance: LEVETIRACETAM
     Indication: Product used for unknown indication
     Dosage: UNK
     Route: 065
  2. OXCARBAZEPINE [Interacting]
     Active Substance: OXCARBAZEPINE
     Indication: Product used for unknown indication
     Dosage: UNK
     Route: 065
  3. CLONAZEPAM [Interacting]
     Active Substance: CLONAZEPAM
     Indication: Status epilepticus
     Dosage: UNK
     Route: 065
  4. CLOBAZAM [Interacting]
     Active Substance: CLOBAZAM
     Indication: Status epilepticus
     Dosage: UNK
     Route: 065

REACTIONS (3)
  - Drug interaction [Unknown]
  - Hallucination [Recovered/Resolved]
  - Confusional state [Recovered/Resolved]
